FAERS Safety Report 8276086-3 (Version None)
Quarter: 2012Q2

REPORT INFORMATION
  Report Type: 
  Country: None (occurrence: None)
  Receive Date: 20120412
  Receipt Date: 20120404
  Transmission Date: 20120825
  Serious: Yes (Other)
  Sender: FDA-Public Use
  Company Number: US-BAYER-2012-014972

PATIENT
  Age: 28 Year
  Sex: Female
  Weight: 58.957 kg

DRUGS (2)
  1. MIRENA [Suspect]
     Indication: CONTRACEPTION
     Dosage: UNK
     Dates: start: 20091027, end: 20101119
  2. NSAID'S [Concomitant]
     Indication: ANALGESIC THERAPY

REACTIONS (3)
  - UTERINE PERFORATION [None]
  - VAGINAL HAEMORRHAGE [None]
  - GENITAL HAEMORRHAGE [None]
